FAERS Safety Report 24080478 (Version 2)
Quarter: 2024Q3

REPORT INFORMATION
  Report Type: Spontaneous
  Country: JP (occurrence: JP)
  Receive Date: 20240711
  Receipt Date: 20240730
  Transmission Date: 20241016
  Serious: Yes (Other)
  Sender: ARGENX BVBA
  Company Number: JP-ARGENX-2024-ARGX-JP001551AA

PATIENT

DRUGS (2)
  1. EFGARTIGIMOD ALFA [Suspect]
     Active Substance: EFGARTIGIMOD ALFA
     Indication: Myasthenia gravis
     Dosage: UNK
     Route: 042
  2. EFGARTIGIMOD ALFA [Suspect]
     Active Substance: EFGARTIGIMOD ALFA
     Dosage: UNK
     Route: 042

REACTIONS (12)
  - Enterocolitis [Unknown]
  - Limb discomfort [Unknown]
  - Eyelid ptosis [Unknown]
  - Peripheral swelling [Unknown]
  - Condition aggravated [Unknown]
  - Malaise [Unknown]
  - Pain [Unknown]
  - Limb discomfort [Unknown]
  - Limb discomfort [Unknown]
  - Diarrhoea [Unknown]
  - Nasopharyngitis [Unknown]
  - Therapeutic response shortened [Unknown]

NARRATIVE: CASE EVENT DATE: 20231011
